FAERS Safety Report 4772006-4 (Version None)
Quarter: 2005Q3

REPORT INFORMATION
  Report Type: 
  Country: None (occurrence: None)
  Receive Date: 20050916
  Receipt Date: 20050718
  Transmission Date: 20060218
  Serious: Yes (Death, Life-Threatening, Hospitalization, Other)
  Sender: FDA-Public Use
  Company Number: BE-ABBOTT-05P-013-0306102-00

PATIENT
  Sex: Female
  Weight: 49.5 kg

DRUGS (20)
  1. ZEMPLAR [Suspect]
     Indication: HYPERPARATHYROIDISM
     Route: 042
     Dates: start: 20050602, end: 20050614
  2. ZEMPLAR [Suspect]
     Route: 042
     Dates: start: 20050625, end: 20050629
  3. ZEMPLAR [Suspect]
     Route: 042
     Dates: start: 20050702, end: 20050714
  4. ZEMPLAR [Suspect]
     Route: 042
     Dates: start: 20050804, end: 20050818
  5. EPOGEN [Concomitant]
     Indication: ANAEMIA PROPHYLAXIS
     Dates: start: 20040704, end: 20050818
  6. IRON SACHHROSE [Concomitant]
     Indication: ANAEMIA PROPHYLAXIS
     Dates: start: 20050425, end: 20050812
  7. IRON SACHHROSE [Concomitant]
     Dates: start: 20050813, end: 20050818
  8. ASPIRIN [Concomitant]
     Indication: THROMBOSIS PROPHYLAXIS
     Dates: start: 20050118, end: 20050818
  9. CALCIUM CARBONATE [Concomitant]
     Indication: MINERAL SUPPLEMENTATION
     Dates: start: 20050216, end: 20050602
  10. CALCIUM CARBONATE [Concomitant]
     Dates: start: 20050603, end: 20050615
  11. ALPHACALCIDOL [Concomitant]
     Indication: VITAMIN D
     Dates: start: 20050531, end: 20050602
  12. BISOPROLOL [Concomitant]
     Indication: PROPHYLAXIS
     Dates: start: 20050719, end: 20050818
  13. BISOPROLOL [Concomitant]
     Indication: ATRIAL FIBRILLATION
  14. IBUPROFEN [Concomitant]
     Indication: MUSCLE RUPTURE
     Dates: start: 20050707, end: 20050724
  15. LEVOFLOXACIN [Concomitant]
     Indication: ANTIBIOTIC PROPHYLAXIS
     Dates: start: 20050718, end: 20050725
  16. PARACETAMOL [Concomitant]
     Indication: MUSCLE RUPTURE
     Dates: start: 20050718, end: 20050724
  17. PARACETAMOL [Concomitant]
     Dates: start: 20050725, end: 20050818
  18. TRANADOL [Concomitant]
     Indication: MUSCLE RUPTURE
     Dates: start: 20050719, end: 20050818
  19. RANITIDINE [Concomitant]
     Indication: PROPHYLAXIS AGAINST GASTROINTESTINAL ULCER
     Dates: start: 20050720, end: 20050727
  20. OMEPRAZOLE [Concomitant]
     Indication: PROPHYLAXIS AGAINST GASTROINTESTINAL ULCER
     Dates: start: 20050728, end: 20050818

REACTIONS (6)
  - CARDIAC ARREST [None]
  - CIRCULATORY COLLAPSE [None]
  - COLLAPSE OF LUNG [None]
  - DEATH [None]
  - MALAISE [None]
  - RESPIRATORY ARREST [None]
